FAERS Safety Report 8947237 (Version 1)
Quarter: 2012Q4

REPORT INFORMATION
  Report Type: 
  Country: US (occurrence: US)
  Receive Date: 20121205
  Receipt Date: 20121205
  Transmission Date: 20130627
  Serious: Yes (Other)
  Sender: FDA-Public Use
  Company Number: US-PFIZER INC-2012301937

PATIENT
  Age: 58 Year
  Sex: Female

DRUGS (6)
  1. DOXORUBICIN HCL [Suspect]
     Indication: BREAST CARCINOMA
     Dosage: UNK
  2. PROCHLORPERAZINE [Concomitant]
  3. LORAZEPAM [Concomitant]
  4. PRAVASTATIN [Concomitant]
  5. HYDROCHLOROTHIAZIDE/TRIAMTERENE [Concomitant]
     Dosage: UNK
  6. HYDROCODONE W/ACETAMINOPHEN [Concomitant]

REACTIONS (1)
  - Cutaneous lupus erythematosus [Recovered/Resolved]
